FAERS Safety Report 9916237 (Version 1)
Quarter: 2014Q1

REPORT INFORMATION
  Report Type: Spontaneous
  Country: IT (occurrence: None)
  Receive Date: 20140219
  Receipt Date: 20140219
  Transmission Date: 20141002
  Serious: Yes (Hospitalization)
  Sender: FDA-Public Use
  Company Number: SP07511

PATIENT
  Age: 87 Year
  Sex: Female

DRUGS (3)
  1. XIFAXAN [Suspect]
     Indication: SUICIDE ATTEMPT
     Dosage: 2400 MG (1 D), ORAL
     Route: 048
     Dates: start: 20140127, end: 20140127
  2. ESOPRAL [Suspect]
     Indication: SUICIDE ATTEMPT
     Route: 048
     Dates: start: 20140127, end: 20140127
  3. TRIATEC [Suspect]
     Indication: SUICIDE ATTEMPT
     Dosage: 60 MG, ORAL
     Route: 048
     Dates: start: 20140127, end: 20140127

REACTIONS (4)
  - Agitation [None]
  - Blood pressure increased [None]
  - Exposure via ingestion [None]
  - Suicide attempt [None]
